FAERS Safety Report 8590690-4 (Version None)
Quarter: 2012Q3

REPORT INFORMATION
  Report Type: 
  Country: None (occurrence: None)
  Receive Date: 20120813
  Receipt Date: 20120810
  Transmission Date: 20120928
  Serious: Yes (Hospitalization)
  Sender: FDA-Public Use
  Company Number: DE-ROCHE-1016480

PATIENT
  Sex: Male
  Weight: 94.8 kg

DRUGS (8)
  1. BASILIXIMAB [Suspect]
     Indication: RENAL TRANSPLANT
     Route: 042
     Dates: start: 20090807
  2. CELLCEPT [Suspect]
     Route: 048
     Dates: start: 20090823
  3. CELLCEPT [Suspect]
     Dosage: DROP OUT
     Route: 048
     Dates: start: 20090916
  4. PREDNISOLONE [Suspect]
     Indication: RENAL TRANSPLANT
     Route: 048
     Dates: start: 20090806
  5. CELLCEPT [Suspect]
     Indication: RENAL TRANSPLANT
     Route: 048
     Dates: start: 20090807, end: 20090822
  6. CELLCEPT [Suspect]
     Route: 048
     Dates: start: 20090824, end: 20090826
  7. CELLCEPT [Suspect]
     Route: 048
     Dates: start: 20090827, end: 20090915
  8. TACROLIMUS [Suspect]
     Indication: RENAL TRANSPLANT
     Route: 048
     Dates: start: 20090806

REACTIONS (1)
  - TRANSPLANT REJECTION [None]
